FAERS Safety Report 6437928-7 (Version None)
Quarter: 2009Q4

REPORT INFORMATION
  Report Type: 
  Country: None (occurrence: None)
  Receive Date: 20091112
  Receipt Date: 20091102
  Transmission Date: 20100525
  Serious: Yes (Other)
  Sender: FDA-Public Use
  Company Number: US-PFIZER INC-2009293094

PATIENT
  Sex: Male
  Weight: 109.31 kg

DRUGS (10)
  1. GLYNASE [Suspect]
     Indication: DIABETES MELLITUS
     Dosage: 3 MG, 2X/DAY
  2. PLAVIX [Concomitant]
  3. SPIRONOLACTONE [Concomitant]
  4. NAPROXEN [Concomitant]
  5. LISINOPRIL [Concomitant]
  6. GABAPENTIN [Concomitant]
  7. FUROSEMIDE [Concomitant]
  8. CRESTOR [Concomitant]
  9. CILOSTAZOL [Concomitant]
  10. METOPROLOL [Concomitant]

REACTIONS (2)
  - BLOOD GLUCOSE INCREASED [None]
  - CARDIAC DISORDER [None]
